FAERS Safety Report 5342600-0 (Version None)
Quarter: 2007Q2

REPORT INFORMATION
  Report Type: 
  Country: None (occurrence: None)
  Receive Date: 20070601
  Receipt Date: 20070402
  Transmission Date: 20071010
  Serious: No
  Sender: FDA-Public Use
  Company Number: A0645578A

PATIENT
  Age: 45 Year
  Sex: Female

DRUGS (3)
  1. AUGMENTIN XR [Suspect]
     Dosage: 2TAB TWICE PER DAY
     Route: 048
     Dates: start: 20070328, end: 20070401
  2. UNKNOWN MEDICATION [Concomitant]
  3. PAXIL [Concomitant]

REACTIONS (3)
  - HYPERSENSITIVITY [None]
  - PRURITUS [None]
  - RASH ERYTHEMATOUS [None]
